FAERS Safety Report 25019696 (Version 2)
Quarter: 2025Q1

REPORT INFORMATION
  Report Type: Spontaneous
  Country: IR (occurrence: IR)
  Receive Date: 20250227
  Receipt Date: 20250305
  Transmission Date: 20250408
  Serious: Yes (Other)
  Sender: BIOMARIN
  Company Number: IR-BIOMARINAP-IR-2025-164169

PATIENT

DRUGS (1)
  1. NAGLAZYME [Suspect]
     Active Substance: GALSULFASE
     Indication: Mucopolysaccharidosis VI
     Dosage: UNK, QW
     Route: 042

REACTIONS (2)
  - Bone marrow transplant [Unknown]
  - Chest discomfort [Unknown]
